FAERS Safety Report 4840351-X (Version None)
Quarter: 2005Q4

REPORT INFORMATION
  Report Type: 
  Country: None (occurrence: None)
  Receive Date: 20051025
  Receipt Date: 20050111
  Transmission Date: 20060501
  Serious: No
  Sender: FDA-Public Use
  Company Number: 2005-00104

PATIENT
  Age: 38 Year
  Sex: Male

DRUGS (3)
  1. TUBERSOL [Suspect]
     Indication: TUBERCULIN TEST
     Dosage: 0.1 ML (0.1 ML,1 IN 1 D),I.D.
     Route: 023
     Dates: start: 20050110
  2. TD ADS ADULT (T5D2 ADSORBED - U) [Suspect]
     Indication: IMMUNISATION
     Dosage: 0.5 ML (0.5 ML,1 IN 1 D),I.M
     Route: 030
     Dates: start: 20050110
  3. TD ADS ADULT(T5D2 ADSORBED - U) [Concomitant]

REACTIONS (3)
  - INJECTION SITE VESICLES [None]
  - MUSCULAR WEAKNESS [None]
  - PAIN IN EXTREMITY [None]
